FAERS Safety Report 7942887-1 (Version None)
Quarter: 2011Q4

REPORT INFORMATION
  Report Type: 
  Country: None (occurrence: None)
  Receive Date: 20111128
  Receipt Date: 20111121
  Transmission Date: 20120403
  Serious: Yes (Other)
  Sender: FDA-Public Use
  Company Number: US-ALEXION PHARMACEUTICALS INC.-A201101767

PATIENT
  Sex: Female

DRUGS (4)
  1. NORCO [Concomitant]
     Dosage: 7.5/325 MG, Q6H, PRN
  2. SOLIRIS [Suspect]
     Indication: PAROXYSMAL NOCTURNAL HAEMOGLOBINURIA
     Dosage: 600 MG, QW
     Route: 042
     Dates: start: 20080924
  3. SOLIRIS [Suspect]
     Dosage: 900 MG, Q2W
     Route: 042
     Dates: start: 20081022, end: 20111013
  4. ALDACTONE [Concomitant]
     Dosage: 100 MG, UNK

REACTIONS (1)
  - ASCITES [None]
